FAERS Safety Report 9548080 (Version 2)
Quarter: 2013Q3

REPORT INFORMATION
  Report Type: Spontaneous
  Country: US (occurrence: US)
  Receive Date: 20130924
  Receipt Date: 20130924
  Transmission Date: 20140515
  Serious: No
  Sender: FDA-Public Use
  Company Number: US-PURDUE-USA-2011-0074120

PATIENT
  Sex: Male

DRUGS (5)
  1. MORPHINE SULFATE (SIMILAR TO NDA 19-516) [Suspect]
     Indication: PAIN
     Dosage: 100 MG, TID
     Dates: start: 2010
  2. MORPHINE SULFATE (SIMILAR TO NDA 19-516) [Suspect]
     Dosage: 30 MG, QID
  3. MORPHINE SULFATE (SIMILAR TO NDA 19-516) [Suspect]
     Dosage: 15 MG, QID
     Route: 048
  4. ATENOLOL [Concomitant]
  5. CHOLESTEREOL MEDICATION [Concomitant]

REACTIONS (6)
  - Thyroid function test abnormal [Unknown]
  - Back injury [Unknown]
  - Listless [Not Recovered/Not Resolved]
  - Activities of daily living impaired [Unknown]
  - Drug ineffective [Not Recovered/Not Resolved]
  - Headache [Not Recovered/Not Resolved]
